FAERS Safety Report 20615243 (Version 1)
Quarter: 2022Q1

REPORT INFORMATION
  Report Type: Spontaneous
  Country: FR (occurrence: FR)
  Receive Date: 20220321
  Receipt Date: 20220321
  Transmission Date: 20220424
  Serious: Yes (Hospitalization)
  Sender: FDA-Public Use
  Company Number: None

PATIENT
  Age: 0 Year
  Sex: Male

DRUGS (3)
  1. LOVENOX [Suspect]
     Active Substance: ENOXAPARIN SODIUM
     Indication: Thrombosis prophylaxis
     Dosage: 4000 IU, QD
     Route: 058
     Dates: start: 20210913, end: 20210920
  2. IOMERON [Suspect]
     Active Substance: IOMEPROL
     Indication: Sleep disorder therapy
     Dosage: 1 DF, TOTAL
     Route: 042
     Dates: start: 20210910, end: 20210910
  3. OXAZEPAM [Suspect]
     Active Substance: OXAZEPAM
     Indication: Sleep disorder therapy
     Dosage: UNK
     Route: 058
     Dates: start: 20210914, end: 20210919

REACTIONS (1)
  - Eczema [Recovering/Resolving]

NARRATIVE: CASE EVENT DATE: 20210918
